FAERS Safety Report 5845690-1 (Version None)
Quarter: 2008Q3

REPORT INFORMATION
  Report Type: 
  Country: None (occurrence: None)
  Receive Date: 20080814
  Receipt Date: 20080804
  Transmission Date: 20090109
  Serious: Yes (Other)
  Sender: FDA-Public Use
  Company Number: PHBS2008US05401

PATIENT
  Age: 38 Year
  Sex: Male

DRUGS (7)
  1. CLOFAZIMINE [Suspect]
     Indication: TUBERCULOSIS
     Dosage: UNK
     Dates: start: 20060601
  2. ETHIONAMIDE [Concomitant]
     Indication: TUBERCULOSIS
     Dosage: UNK
     Dates: start: 20051101
  3. CYCLOSERINE [Concomitant]
     Indication: TUBERCULOSIS
     Dosage: UNK
     Dates: start: 20051101
  4. MOXIFLOXACIN HCL [Concomitant]
     Indication: TUBERCULOSIS
     Dosage: UNK
     Dates: start: 20060601
  5. LINEZOLID [Concomitant]
     Indication: TUBERCULOSIS
     Dosage: UNK
     Dates: start: 20060601
  6. ANTACID TAB [Concomitant]
  7. ANTIEMETICS [Concomitant]

REACTIONS (5)
  - ALOPECIA [None]
  - ANAEMIA [None]
  - NEUROPATHY PERIPHERAL [None]
  - NEUTROPENIA [None]
  - TOOTH DISCOLOURATION [None]
